FAERS Safety Report 8378929-1 (Version None)
Quarter: 2012Q2

REPORT INFORMATION
  Report Type: 
  Country: None (occurrence: None)
  Receive Date: 20120523
  Receipt Date: 20120518
  Transmission Date: 20120825
  Serious: No
  Sender: FDA-Public Use
  Company Number: US-PFIZER INC-2012092147

PATIENT
  Sex: Female

DRUGS (4)
  1. NEURONTIN [Suspect]
     Dosage: 300 MG, 3X/DAY
     Route: 048
  2. TETRACYCLINE HCL [Suspect]
     Dosage: UNK
  3. TOPIRAMATE [Suspect]
     Dosage: UNK
  4. EFFEXOR XR [Suspect]
     Dosage: 75 MG

REACTIONS (1)
  - NO ADVERSE EVENT [None]
